FAERS Safety Report 9774151 (Version 1)
Quarter: 2013Q4

REPORT INFORMATION
  Report Type: Spontaneous
  Country: ES (occurrence: AR)
  Receive Date: 20131220
  Receipt Date: 20131220
  Transmission Date: 20140711
  Serious: Yes (Hospitalization)
  Sender: FDA-Public Use
  Company Number: ES-ASTRAZENECA-2013SE91369

PATIENT
  Age: 36 Year
  Sex: Female

DRUGS (1)
  1. QUETIAPINE [Suspect]
     Route: 048

REACTIONS (5)
  - Depression [Unknown]
  - Insomnia [Unknown]
  - Weight increased [Unknown]
  - Restless legs syndrome [Unknown]
  - Intentional drug misuse [Unknown]
